FAERS Safety Report 12332517 (Version 2)
Quarter: 2016Q2

REPORT INFORMATION
  Report Type: Spontaneous
  Country: US (occurrence: US)
  Receive Date: 20160504
  Receipt Date: 20160509
  Transmission Date: 20160815
  Serious: Yes (Other)
  Sender: FDA-Public Use
  Company Number: US-JNJFOC-20160424445

PATIENT
  Age: 34 Year
  Sex: Female
  Weight: 77.57 kg

DRUGS (3)
  1. REMICADE [Suspect]
     Active Substance: INFLIXIMAB
     Indication: PSORIASIS
     Dosage: STARTER DOSE
     Route: 042
     Dates: start: 20160415
  2. LORTAB [Concomitant]
     Active Substance: ACETAMINOPHEN\HYDROCODONE BITARTRATE
     Dosage: HALF TABLET
     Route: 065
  3. REMICADE [Suspect]
     Active Substance: INFLIXIMAB
     Indication: PSORIATIC ARTHROPATHY
     Dosage: STARTER DOSE
     Route: 042
     Dates: start: 20160415

REACTIONS (7)
  - Tonsillar haemorrhage [Recovered/Resolved]
  - Pruritus [Unknown]
  - Tonsillar disorder [Not Recovered/Not Resolved]
  - Viral infection [Unknown]
  - Urticaria [Unknown]
  - Arthralgia [Not Recovered/Not Resolved]
  - Pyrexia [Recovered/Resolved]

NARRATIVE: CASE EVENT DATE: 20160423
